FAERS Safety Report 4343694-1 (Version None)
Quarter: 2004Q2

REPORT INFORMATION
  Report Type: 
  Country: None (occurrence: None)
  Receive Date: 20040419
  Receipt Date: 20040401
  Transmission Date: 20050107
  Serious: Yes (Death)
  Sender: FDA-Public Use
  Company Number: CEL-2003-03345-ROC

PATIENT
  Age: 89 Year
  Sex: Female

DRUGS (6)
  1. ZAROXOLYN [Suspect]
     Indication: CARDIAC FAILURE CONGESTIVE
     Dosage: 5 MG, ONCE DAIL MONDAY THROUGH FRIDAY, PO
     Route: 048
     Dates: start: 20030501, end: 20030701
  2. ZAROXOLYN [Suspect]
     Indication: FLUID RETENTION
     Dosage: 5 MG, ONCE DAIL MONDAY THROUGH FRIDAY, PO
     Route: 048
     Dates: start: 20030501, end: 20030701
  3. LASIX [Concomitant]
  4. SPIRONOLACTONE [Concomitant]
  5. POTASSIUM (POTASSIUM) [Concomitant]
  6. ANTIGOUT PREPARATIONS (ANTIGOUT PREPARATIONS) [Concomitant]

REACTIONS (4)
  - ABNORMAL BEHAVIOUR [None]
  - CONFUSIONAL STATE [None]
  - MENTAL DISORDER [None]
  - WEIGHT DECREASED [None]
